FAERS Safety Report 15645068 (Version 1)
Quarter: 2018Q4

REPORT INFORMATION
  Report Type: Report from Study
  Country: US (occurrence: US)
  Receive Date: 20181121
  Receipt Date: 20181121
  Transmission Date: 20190205
  Serious: Yes (Hospitalization)
  Sender: FDA-Public Use
  Company Number: US-SHIRE-US201844236

PATIENT
  Age: 29 Year
  Sex: Female
  Weight: 53.61 kg

DRUGS (1)
  1. CUVITRU [Suspect]
     Active Substance: HUMAN IMMUNOGLOBULIN G
     Indication: PRIMARY IMMUNODEFICIENCY SYNDROME
     Dosage: 11 G, 1X/2WKS
     Route: 058
     Dates: start: 20181108

REACTIONS (2)
  - Feeling abnormal [Unknown]
  - Infusion site pain [Unknown]

NARRATIVE: CASE EVENT DATE: 20181108
